FAERS Safety Report 7270382-4 (Version None)
Quarter: 2011Q1

REPORT INFORMATION
  Report Type: 
  Country: None (occurrence: None)
  Receive Date: 20110202
  Receipt Date: 20110120
  Transmission Date: 20110831
  Serious: Yes (Other)
  Sender: FDA-Public Use
  Company Number: US-ELI_LILLY_AND_COMPANY-US201101005582

PATIENT
  Age: 76 Year
  Sex: Female

DRUGS (6)
  1. AVASTIN [Concomitant]
  2. ALIMTA [Suspect]
     Indication: LUNG CANCER METASTATIC
  3. ALOXI [Concomitant]
  4. DEXAMETHASONE [Concomitant]
  5. ATIVAN [Concomitant]
  6. CARBOPLATIN [Concomitant]
     Indication: LUNG CANCER METASTATIC

REACTIONS (1)
  - LYMPHOMA [None]
